FAERS Safety Report 21034628 (Version 4)
Quarter: 2022Q3

REPORT INFORMATION
  Report Type: Report from Study
  Country: BE (occurrence: BE)
  Receive Date: 20220701
  Receipt Date: 20220829
  Transmission Date: 20221027
  Serious: No
  Sender: FDA-Public Use
  Company Number: BE-JNJFOC-20220660787

PATIENT
  Age: 71 Year
  Sex: Female

DRUGS (5)
  1. ESKETAMINE [Suspect]
     Active Substance: ESKETAMINE
     Indication: Depression
     Dates: start: 20211216, end: 20211216
  2. ESKETAMINE [Suspect]
     Active Substance: ESKETAMINE
     Dates: start: 20211220, end: 20211220
  3. ESKETAMINE [Suspect]
     Active Substance: ESKETAMINE
     Dates: start: 20211223, end: 20211223
  4. ESKETAMINE [Suspect]
     Active Substance: ESKETAMINE
     Dosage: 5 DOSES
     Dates: start: 20211227, end: 20220110
  5. ESKETAMINE [Suspect]
     Active Substance: ESKETAMINE
     Dosage: 11 DOSES
     Dates: start: 20220124, end: 20220404

REACTIONS (12)
  - Major depression [Recovered/Resolved]
  - Urinary tract infection [Recovered/Resolved]
  - Lumbar spinal stenosis [Not Recovered/Not Resolved]
  - Rotator cuff syndrome [Not Recovered/Not Resolved]
  - Radiculopathy [Not Recovered/Not Resolved]
  - Bursitis [Not Recovered/Not Resolved]
  - Viral infection [Recovered/Resolved]
  - Diarrhoea [Recovered/Resolved]
  - Sedation [Recovered/Resolved]
  - Nausea [Recovered/Resolved]
  - Dizziness [Recovered/Resolved]
  - Headache [Recovered/Resolved]

NARRATIVE: CASE EVENT DATE: 20211220
